FAERS Safety Report 13236947 (Version 3)
Quarter: 2017Q2

REPORT INFORMATION
  Report Type: Spontaneous
  Country: DE (occurrence: DE)
  Receive Date: 20170215
  Receipt Date: 20170417
  Transmission Date: 20170830
  Serious: Yes (Hospitalization, Disabling, Other)
  Sender: FDA-Public Use
  Company Number: DE-TEVA-737873GER

PATIENT
  Sex: Male

DRUGS (8)
  1. NEBIVOLOL. [Suspect]
     Active Substance: NEBIVOLOL
     Indication: HYPERTENSION
     Dosage: 1-0-1
     Route: 065
  2. TORASEMIDE [Suspect]
     Active Substance: TORSEMIDE
     Indication: HYPERTENSION
     Dosage: 1-0-0
     Route: 065
  3. VALSARTAN. [Suspect]
     Active Substance: VALSARTAN
     Indication: HYPERTENSION
     Dosage: 1-0-1
     Route: 065
  4. INEGY [Suspect]
     Active Substance: EZETIMIBE\SIMVASTATIN
     Indication: BLOOD CHOLESTEROL
     Dosage: 1-0-0
     Route: 065
  5. NOVOPULMON [Suspect]
     Active Substance: BUDESONIDE
     Indication: ASTHMA
     Dosage: 1-0-0
     Route: 065
  6. AMLODIPINE [Suspect]
     Active Substance: AMLODIPINE BESYLATE
     Indication: HYPERTENSION
     Dosage: 0-0-1
     Route: 065
  7. ACETYLSALICYLIC ACID 100 MG [Suspect]
     Active Substance: ASPIRIN
     Indication: HYPERTENSION
     Dosage: 1-0-0
     Route: 065
  8. SALBUTAMOL [Suspect]
     Active Substance: ALBUTEROL
     Indication: ASTHMA
     Dosage: AS REQUIRED
     Route: 065

REACTIONS (7)
  - Arrhythmia [Not Recovered/Not Resolved]
  - Anxiety [Not Recovered/Not Resolved]
  - Sleep disorder [Not Recovered/Not Resolved]
  - Hypertensive emergency [Not Recovered/Not Resolved]
  - Peripheral coldness [Not Recovered/Not Resolved]
  - Abdominal pain upper [Not Recovered/Not Resolved]
  - Discomfort [Not Recovered/Not Resolved]
